FAERS Safety Report 10460715 (Version 1)
Quarter: 2014Q3

REPORT INFORMATION
  Report Type: Spontaneous
  Country: US (occurrence: US)
  Receive Date: 20140918
  Receipt Date: 20140918
  Transmission Date: 20150326
  Serious: Yes (Other)
  Sender: FDA-Public Use
  Company Number: US-TEVA-474840USA

PATIENT
  Age: 59 Year
  Sex: Male

DRUGS (2)
  1. FLUOXETINE [Suspect]
     Active Substance: FLUOXETINE\FLUOXETINE HYDROCHLORIDE
     Indication: DEPRESSION
     Dosage: 10 MILLIGRAM DAILY;
     Dates: start: 20140328
  2. AMBIEN [Suspect]
     Active Substance: ZOLPIDEM TARTRATE

REACTIONS (6)
  - Thinking abnormal [Unknown]
  - Paraesthesia [Unknown]
  - Suicidal ideation [Unknown]
  - Anxiety [Unknown]
  - Suicidal ideation [Unknown]
  - Insomnia [Unknown]

NARRATIVE: CASE EVENT DATE: 201403
